FAERS Safety Report 5594083-3 (Version None)
Quarter: 2008Q1

REPORT INFORMATION
  Report Type: 
  Country: None (occurrence: None)
  Receive Date: 20080116
  Receipt Date: 20080104
  Transmission Date: 20080703
  Serious: Yes (Hospitalization)
  Sender: FDA-Public Use
  Company Number: FR-GENENTECH-254002

PATIENT
  Age: 20 Year
  Sex: Female

DRUGS (6)
  1. MABTHERA [Suspect]
     Indication: EVANS SYNDROME
     Dosage: 1 G, 2/MONTH
     Route: 042
     Dates: start: 20070918
  2. ENDOXAN [Concomitant]
     Indication: EVANS SYNDROME
     Route: 042
     Dates: start: 20070918
  3. CALCIUM CARBONATE [Concomitant]
     Indication: DRUG USE FOR UNKNOWN INDICATION
  4. SPECIAFOLDINE [Concomitant]
     Indication: DRUG USE FOR UNKNOWN INDICATION
  5. TRIATEC [Concomitant]
     Indication: DRUG USE FOR UNKNOWN INDICATION
  6. TARDYFERON [Concomitant]
     Indication: DRUG USE FOR UNKNOWN INDICATION

REACTIONS (1)
  - REVERSIBLE POSTERIOR LEUKOENCEPHALOPATHY SYNDROME [None]
